FAERS Safety Report 7206240-0 (Version None)
Quarter: 2010Q4

REPORT INFORMATION
  Report Type: 
  Country: None (occurrence: None)
  Receive Date: 20101221
  Receipt Date: 20101210
  Transmission Date: 20110411
  Serious: Yes (Hospitalization, Other)
  Sender: FDA-Public Use
  Company Number: 2010AP002501

PATIENT
  Age: 63 Year
  Sex: Female

DRUGS (4)
  1. SOTALOL HCL [Suspect]
     Indication: ATRIAL FIBRILLATION
     Dosage: 80 MG;BID
  2. OSELTAMIVIR [Suspect]
     Indication: INFLUENZA
     Dosage: 75 MG;BID;PO
     Route: 048
  3. AMPICILLIN [Concomitant]
  4. SULBACTAM [Concomitant]

REACTIONS (17)
  - BLOOD THYROID STIMULATING HORMONE DECREASED [None]
  - BRADYCARDIA [None]
  - COUGH [None]
  - DRUG INTERACTION [None]
  - EJECTION FRACTION DECREASED [None]
  - HYPOKALAEMIA [None]
  - MALAISE [None]
  - MITRAL VALVE INCOMPETENCE [None]
  - MYALGIA [None]
  - NAUSEA [None]
  - PYELONEPHRITIS [None]
  - PYREXIA [None]
  - TACHYCARDIA [None]
  - TORSADE DE POINTES [None]
  - UNRESPONSIVE TO STIMULI [None]
  - URINARY TRACT INFECTION [None]
  - VOMITING [None]
